FAERS Safety Report 5034308-6 (Version None)
Quarter: 2006Q2

REPORT INFORMATION
  Report Type: 
  Country: None (occurrence: None)
  Receive Date: 20060626
  Receipt Date: 20060613
  Transmission Date: 20061013
  Serious: Yes (Other)
  Sender: FDA-Public Use
  Company Number: PHEH2006US07804

PATIENT
  Age: 63 Year
  Sex: Male

DRUGS (3)
  1. ZOMETA [Suspect]
     Indication: OSTEOPOROSIS
     Dosage: ONCE/YEAR FOR 1 YEAR
     Dates: start: 20030101, end: 20060301
  2. HORMONES [Concomitant]
     Indication: PROSTATE CANCER
  3. CHEMOTHERAPEUTICS,OTHER [Concomitant]
     Indication: PROSTATE CANCER

REACTIONS (4)
  - OSTEONECROSIS [None]
  - TOOTH ABSCESS [None]
  - TOOTH DISORDER [None]
  - TOOTHACHE [None]
